FAERS Safety Report 5787163-0 (Version None)
Quarter: 2008Q2

REPORT INFORMATION
  Report Type: 
  Country: None (occurrence: None)
  Receive Date: 20080625
  Receipt Date: 20080402
  Transmission Date: 20081010
  Serious: No
  Sender: FDA-Public Use
  Company Number: US-BAUSCH-2008BL001502

PATIENT
  Age: 69 Year
  Sex: Female

DRUGS (6)
  1. ALAWAY [Suspect]
     Indication: EYE ALLERGY
     Route: 047
     Dates: start: 20080329, end: 20080329
  2. ALAWAY [Suspect]
     Route: 047
     Dates: start: 20080331, end: 20080331
  3. LOPRESSOR [Concomitant]
  4. DIAZIDE [Concomitant]
  5. ASPIRIN [Concomitant]
  6. XANAX /USA/ [Concomitant]

REACTIONS (4)
  - CONDITION AGGRAVATED [None]
  - EYE IRRITATION [None]
  - EYE PRURITUS [None]
  - OCULAR HYPERAEMIA [None]
